FAERS Safety Report 13949095 (Version 2)
Quarter: 2017Q4

REPORT INFORMATION
  Report Type: Spontaneous
  Country: AU (occurrence: AU)
  Receive Date: 20170908
  Receipt Date: 20171220
  Transmission Date: 20180320
  Serious: Yes (Other)
  Sender: FDA-Public Use
  Company Number: AU-PFIZER INC-2017386764

PATIENT
  Sex: Female

DRUGS (3)
  1. METOPROLOL. [Concomitant]
     Active Substance: METOPROLOL
     Dosage: UNK
  2. TRITACE [Suspect]
     Active Substance: RAMIPRIL
     Dosage: UNK
     Route: 048
  3. FRUSEMIDE [Concomitant]
     Active Substance: FUROSEMIDE
     Dosage: UNK

REACTIONS (4)
  - Syncope [Unknown]
  - Circulatory collapse [Unknown]
  - Foaming at mouth [Unknown]
  - Chest pain [Unknown]
